FAERS Safety Report 17596458 (Version 4)
Quarter: 2020Q2

REPORT INFORMATION
  Report Type: Spontaneous
  Country: IT (occurrence: IT)
  Receive Date: 20200330
  Receipt Date: 20200508
  Transmission Date: 20200713
  Serious: Yes (Life-Threatening, Other)
  Sender: FDA-Public Use
  Company Number: IT-BEH-2020114974

PATIENT
  Age: 60 Year
  Sex: Male
  Weight: 72 kg

DRUGS (4)
  1. PRIVIGEN [Suspect]
     Active Substance: HUMAN IMMUNOGLOBULIN G
     Indication: HYPOGAMMAGLOBULINAEMIA
     Dosage: CYCLICAL
     Route: 042
     Dates: start: 20200226, end: 20200226
  2. NALTREXONE HYDROCHLORIDE. [Concomitant]
     Active Substance: NALTREXONE HYDROCHLORIDE
     Indication: HYPERTENSION
     Route: 048
  3. ATORVASTATIN [Concomitant]
     Active Substance: ATORVASTATIN
     Indication: DYSLIPIDAEMIA
     Route: 048
  4. ACETYLCYSTEINE. [Concomitant]
     Active Substance: ACETYLCYSTEINE

REACTIONS (9)
  - Hypertension [Recovered/Resolved]
  - Malaise [Recovering/Resolving]
  - Hyperpyrexia [Recovered/Resolved]
  - Pyrexia [Recovering/Resolving]
  - Asthenia [Recovered/Resolved]
  - Dyspnoea at rest [Recovered/Resolved]
  - Nasopharyngitis [Recovering/Resolving]
  - Oxygen saturation decreased [Recovered/Resolved]
  - Hypertensive crisis [Unknown]

NARRATIVE: CASE EVENT DATE: 20200226
